FAERS Safety Report 10662212 (Version 2)
Quarter: 2015Q4

REPORT INFORMATION
  Report Type: Spontaneous
  Country: JP (occurrence: JP)
  Receive Date: 20141218
  Receipt Date: 20151110
  Transmission Date: 20160304
  Serious: Yes (Other)
  Sender: FDA-Public Use
  Company Number: JP-ROCHE-1510633

PATIENT
  Age: 31 Year
  Sex: Female
  Weight: 48 kg

DRUGS (8)
  1. PREDONINE [Concomitant]
     Active Substance: PREDNISOLONE\PREDNISOLONE ACETATE\PREDNISOLONE SODIUM SUCCINATE
     Route: 048
     Dates: start: 200204
  2. PREDONINE [Concomitant]
     Active Substance: PREDNISOLONE\PREDNISOLONE ACETATE\PREDNISOLONE SODIUM SUCCINATE
     Route: 048
  3. PREDONINE [Concomitant]
     Active Substance: PREDNISOLONE\PREDNISOLONE ACETATE\PREDNISOLONE SODIUM SUCCINATE
     Indication: JUVENILE IDIOPATHIC ARTHRITIS
     Route: 048
     Dates: start: 199508
  4. BONALON [Concomitant]
     Active Substance: ALENDRONATE SODIUM
     Indication: JUVENILE IDIOPATHIC ARTHRITIS
     Route: 048
     Dates: start: 199508
  5. VENA [Concomitant]
     Active Substance: DIPHENHYDRAMINE HYDROCHLORIDE
     Dosage: [AKUTEMURA] DRIP DAY
     Route: 048
  6. RHEUMATREX [Concomitant]
     Active Substance: METHOTREXATE SODIUM
     Indication: JUVENILE IDIOPATHIC ARTHRITIS
     Route: 048
  7. ACTEMRA [Suspect]
     Active Substance: TOCILIZUMAB
     Indication: JUVENILE IDIOPATHIC ARTHRITIS
     Route: 041
     Dates: start: 20080827, end: 20140220
  8. PREDONINE [Concomitant]
     Active Substance: PREDNISOLONE\PREDNISOLONE ACETATE\PREDNISOLONE SODIUM SUCCINATE
     Route: 048
     Dates: start: 200808

REACTIONS (5)
  - Haemorrhagic ovarian cyst [Unknown]
  - Adenomyosis [Unknown]
  - Abortion spontaneous [Unknown]
  - Maternal exposure during pregnancy [Unknown]
  - Uterine leiomyoma [Unknown]

NARRATIVE: CASE EVENT DATE: 201308
